FAERS Safety Report 6198282-1 (Version None)
Quarter: 2009Q2

REPORT INFORMATION
  Report Type: 
  Country: None (occurrence: None)
  Receive Date: 20090521
  Receipt Date: 20090518
  Transmission Date: 20091009
  Serious: Yes (Hospitalization)
  Sender: FDA-Public Use
  Company Number: US-B.I. PHARMACEUTICALS,INC./RIDGEFIELD-2009-BP-06193BP

PATIENT
  Age: 59 Year
  Sex: Female
  Weight: 33.6 kg

DRUGS (13)
  1. COMBIVENT [Suspect]
     Route: 055
     Dates: end: 20070101
  2. COMBIVENT [Suspect]
     Route: 055
     Dates: start: 20090101, end: 20090201
  3. SPIRIVA [Suspect]
     Dosage: 18MCG
     Dates: start: 20090101, end: 20090101
  4. XOPENEX HFA [Suspect]
     Indication: ASTHMA
     Dosage: 180MCG
     Route: 055
     Dates: start: 20070101, end: 20090101
  5. XOPENEX HFA [Suspect]
     Indication: CHRONIC OBSTRUCTIVE PULMONARY DISEASE
     Route: 055
     Dates: start: 20090101, end: 20090201
  6. XOPENEX HFA [Suspect]
     Dosage: 180MCG
     Route: 055
     Dates: start: 20090201
  7. XOPENEX [Suspect]
     Indication: ASTHMA
     Route: 055
     Dates: start: 20070101, end: 20080101
  8. XOPENEX [Suspect]
     Indication: CHRONIC OBSTRUCTIVE PULMONARY DISEASE
     Route: 055
     Dates: start: 20090101, end: 20090101
  9. XOPENEX [Suspect]
     Route: 055
     Dates: start: 20090101, end: 20090201
  10. XOPENEX [Suspect]
     Route: 055
     Dates: start: 20090201
  11. ATENOLOL [Concomitant]
     Indication: BLOOD PRESSURE
     Dates: end: 20090101
  12. DILTIAZEM [Concomitant]
     Dates: start: 20090101
  13. OXYGEN [Concomitant]

REACTIONS (12)
  - ALOPECIA [None]
  - BLOOD PRESSURE INCREASED [None]
  - COUGH [None]
  - DECREASED APPETITE [None]
  - DYSURIA [None]
  - FATIGUE [None]
  - NAUSEA [None]
  - PNEUMONIA [None]
  - PRURITUS GENERALISED [None]
  - PULMONARY CONGESTION [None]
  - URTICARIA [None]
  - WEIGHT DECREASED [None]
